FAERS Safety Report 25218798 (Version 2)
Quarter: 2025Q2

REPORT INFORMATION
  Report Type: Other
  Country: IT (occurrence: IT)
  Receive Date: 20250421
  Receipt Date: 20250421
  Transmission Date: 20250716
  Serious: Yes (Hospitalization, Other)
  Sender: STRIDES
  Company Number: IT-RBHC-20-25-DEU-RB-0004196

PATIENT
  Age: 70 Year
  Sex: Female

DRUGS (2)
  1. IBUPROFEN [Suspect]
     Active Substance: IBUPROFEN
     Indication: Headache
     Route: 065
     Dates: start: 202107
  2. GANTENERUMAB [Suspect]
     Active Substance: GANTENERUMAB
     Indication: Product used for unknown indication
     Route: 058
     Dates: start: 201912, end: 202107

REACTIONS (8)
  - Cerebral microhaemorrhage [Unknown]
  - Amyloid related imaging abnormality-microhaemorrhages and haemosiderin deposits [Recovered/Resolved]
  - Amyloid related imaging abnormality-oedema/effusion [Recovering/Resolving]
  - Disorientation [Unknown]
  - Cognitive disorder [Unknown]
  - Anxiety [Unknown]
  - Confusional state [Unknown]
  - Drug ineffective [Not Recovered/Not Resolved]
